FAERS Safety Report 24293326 (Version 1)
Quarter: 2024Q3

REPORT INFORMATION
  Report Type: Spontaneous
  Country: US (occurrence: None)
  Receive Date: 20240906
  Receipt Date: 20240906
  Transmission Date: 20241017
  Serious: No
  Sender: DOMPE FARMACEUTICI
  Company Number: US-FARMAPROD-202312-3820

PATIENT
  Sex: Male

DRUGS (8)
  1. OXERVATE [Suspect]
     Active Substance: CENEGERMIN-BKBJ
     Indication: Neurotrophic keratopathy
     Route: 047
     Dates: start: 20231130
  2. ESZOPICLONE [Concomitant]
     Active Substance: ESZOPICLONE
  3. VITAMINS [Concomitant]
     Active Substance: VITAMINS
  4. FISH OIL [Concomitant]
     Active Substance: FISH OIL
     Dosage: 100-160 MG
  5. HYDROXYZINE HYDROCHLORIDE [Concomitant]
     Active Substance: HYDROXYZINE HYDROCHLORIDE
  6. VENLAFAXINE HCL [Concomitant]
     Active Substance: VENLAFAXINE HYDROCHLORIDE
  7. RESTASIS [Concomitant]
     Active Substance: CYCLOSPORINE
  8. ARTIFICIAL TEARS [Concomitant]
     Dosage: 0.1%-0.3%

REACTIONS (1)
  - Intentional product misuse [Not Recovered/Not Resolved]
